FAERS Safety Report 7152427-5 (Version None)
Quarter: 2010Q4

REPORT INFORMATION
  Report Type: 
  Country: None (occurrence: None)
  Receive Date: 20101126
  Receipt Date: 20101111
  Transmission Date: 20110411
  Serious: No
  Sender: FDA-Public Use
  Company Number: PHHY2010MA77584

PATIENT
  Age: 48 Year
  Sex: Female

DRUGS (1)
  1. SIRDALUD (TIZANIDINE HYDROCHLORIDE) UNKNOWN [Suspect]
     Indication: BACK PAIN
     Dosage: 4MG DAILY, ORAL
     Route: 048
     Dates: start: 20100707, end: 20100717

REACTIONS (3)
  - LOSS OF CONSCIOUSNESS [None]
  - OVERDOSE [None]
  - SOMNOLENCE [None]
